FAERS Safety Report 14804236 (Version 2)
Quarter: 2018Q2

REPORT INFORMATION
  Report Type: Spontaneous
  Country: US (occurrence: US)
  Receive Date: 20180425
  Receipt Date: 20180525
  Transmission Date: 20180711
  Serious: No
  Sender: FDA-Public Use
  Company Number: US-PFIZER INC-2018097748

PATIENT
  Sex: Female

DRUGS (2)
  1. DOCETAXEL. [Suspect]
     Active Substance: DOCETAXEL
     Indication: CHEMOTHERAPY
     Dosage: 155 MG, EVERY FOUR WEEKS (CYCLES: 03)
     Dates: start: 20110317, end: 20110517
  2. CYCLOPHOSPHAMIDE. [Concomitant]
     Active Substance: CYCLOPHOSPHAMIDE
     Dosage: UNK

REACTIONS (5)
  - Hair colour changes [Unknown]
  - Alopecia [Unknown]
  - Madarosis [Unknown]
  - Hair texture abnormal [Unknown]
  - Hair disorder [Unknown]

NARRATIVE: CASE EVENT DATE: 201103
